FAERS Safety Report 4360766-6 (Version None)
Quarter: 2004Q2

REPORT INFORMATION
  Report Type: 
  Country: None (occurrence: None)
  Receive Date: 20040519
  Receipt Date: 20040519
  Transmission Date: 20050107
  Serious: Yes (Hospitalization)
  Sender: FDA-Public Use
  Company Number: None

PATIENT
  Age: 41 Year
  Sex: Male
  Weight: 95 kg

DRUGS (14)
  1. RITUXIMAB [Suspect]
     Indication: CRYOGLOBULINAEMIA
     Dosage: 750 MG IV X 1 3RD OF 4TH INFUSION
     Route: 042
  2. RITUXIMAB [Suspect]
     Indication: VASCULITIS
     Dosage: 750 MG IV X 1 3RD OF 4TH INFUSION
     Route: 042
  3. PREDNISONE [Concomitant]
  4. VIOXX [Concomitant]
  5. MORPHINE [Concomitant]
  6. SILVADENE [Concomitant]
  7. KLONOPIN [Concomitant]
  8. WELLBUTRIN [Concomitant]
  9. NORTRIPTYLINE HCL [Concomitant]
  10. PROTONIX [Concomitant]
  11. ACYCLOVIR [Concomitant]
  12. TRILEPTAL [Concomitant]
  13. RITALIN [Concomitant]
  14. FENTANYL TRNSDERMAL [Concomitant]

REACTIONS (9)
  - CHEST DISCOMFORT [None]
  - CHILLS [None]
  - CYANOSIS [None]
  - DYSPNOEA [None]
  - ELECTROCARDIOGRAM T WAVE ABNORMAL [None]
  - FEELING COLD [None]
  - PALLOR [None]
  - PYREXIA [None]
  - SENSATION OF PRESSURE [None]
